FAERS Safety Report 25274574 (Version 4)
Quarter: 2025Q2

REPORT INFORMATION
  Report Type: Spontaneous
  Country: CA (occurrence: CA)
  Receive Date: 20250506
  Receipt Date: 20250617
  Transmission Date: 20250717
  Serious: Yes (Other)
  Sender: PFIZER
  Company Number: CA-PFIZER INC-202200213155

PATIENT
  Age: 62 Year
  Sex: Female
  Weight: 94 kg

DRUGS (18)
  1. RUXIENCE [Suspect]
     Active Substance: RITUXIMAB-PVVR
     Indication: Microscopic polyangiitis
     Dosage: 750 MG, WEEKLY, FOR 4 WEEKS
     Route: 042
     Dates: start: 20220202, end: 20220202
  2. RUXIENCE [Suspect]
     Active Substance: RITUXIMAB-PVVR
     Dosage: 750 MG, WEEKLY, FOR 4 WEEKS
     Route: 042
     Dates: start: 20220202, end: 20220202
  3. RUXIENCE [Suspect]
     Active Substance: RITUXIMAB-PVVR
     Dosage: 750 MG, WEEKLY, FOR 4 WEEKS
     Route: 042
     Dates: start: 20220209, end: 20220209
  4. RUXIENCE [Suspect]
     Active Substance: RITUXIMAB-PVVR
     Dosage: 750 MG, WEEKLY, FOR 4 WEEKS
     Route: 042
     Dates: start: 20220209, end: 20220209
  5. RUXIENCE [Suspect]
     Active Substance: RITUXIMAB-PVVR
     Dosage: 750 MG, WEEKLY,OR 4 WEEKS
     Route: 042
     Dates: start: 20220223, end: 20220223
  6. RUXIENCE [Suspect]
     Active Substance: RITUXIMAB-PVVR
     Dosage: 750 MG, WEEKLY, 4 WEEKS
     Route: 042
     Dates: start: 20220223, end: 20220223
  7. RUXIENCE [Suspect]
     Active Substance: RITUXIMAB-PVVR
     Route: 042
     Dates: start: 20220913, end: 20220913
  8. RUXIENCE [Suspect]
     Active Substance: RITUXIMAB-PVVR
     Route: 042
     Dates: start: 20220913, end: 20220913
  9. RUXIENCE [Suspect]
     Active Substance: RITUXIMAB-PVVR
     Route: 042
     Dates: start: 20230410, end: 20230410
  10. RUXIENCE [Suspect]
     Active Substance: RITUXIMAB-PVVR
     Route: 042
     Dates: start: 20231120, end: 20231120
  11. RUXIENCE [Suspect]
     Active Substance: RITUXIMAB-PVVR
     Route: 042
     Dates: start: 20240604, end: 20240604
  12. ACETAMINOPHEN [Concomitant]
     Active Substance: ACETAMINOPHEN
     Indication: Premedication
     Dates: start: 20220202
  13. COVID-19 VACCINE [Concomitant]
     Indication: COVID-19 immunisation
     Dates: start: 20241227, end: 20241227
  14. DIPHENHYDRAMINE [Concomitant]
     Active Substance: DIPHENHYDRAMINE
     Indication: Premedication
     Dates: start: 20220202
  15. METHYLPREDNISOLONE ACETATE [Concomitant]
     Active Substance: METHYLPREDNISOLONE ACETATE
     Indication: Premedication
     Route: 042
     Dates: start: 20220202
  16. NAPROXEN [Concomitant]
     Active Substance: NAPROXEN
     Route: 065
  17. PREDNISONE ACETATE [Concomitant]
     Active Substance: PREDNISONE ACETATE
  18. PREDNISONE [Concomitant]
     Active Substance: PREDNISONE
     Route: 065

REACTIONS (11)
  - Pneumonia [Recovering/Resolving]
  - Hip arthroplasty [Unknown]
  - Weight increased [Unknown]
  - COVID-19 [Recovered/Resolved]
  - White blood cell count increased [Unknown]
  - Cough [Recovered/Resolved]
  - Oropharyngeal pain [Recovered/Resolved]
  - Off label use [Unknown]
  - Off label use [Unknown]
  - Off label use [Unknown]
  - Intentional product use issue [Unknown]

NARRATIVE: CASE EVENT DATE: 20220202
